FAERS Safety Report 13191429 (Version 3)
Quarter: 2017Q1

REPORT INFORMATION
  Report Type: Spontaneous
  Country: TW (occurrence: TW)
  Receive Date: 20170207
  Receipt Date: 20170306
  Transmission Date: 20170428
  Serious: Yes (Death, Life-Threatening, Hospitalization)
  Sender: FDA-Public Use
  Company Number: TW-ROCHE-1889852

PATIENT
  Age: 69 Year
  Sex: Male

DRUGS (2)
  1. ZANAMIVIR [Concomitant]
     Active Substance: ZANAMIVIR
  2. TAMIFLU [Suspect]
     Active Substance: OSELTAMIVIR PHOSPHATE
     Indication: INFLUENZA
     Route: 065
     Dates: start: 20170126, end: 2017

REACTIONS (7)
  - Drug resistance [Unknown]
  - Coma [Not Recovered/Not Resolved]
  - Pneumonia [Not Recovered/Not Resolved]
  - Septic shock [Fatal]
  - Renal failure [Unknown]
  - Cardiopulmonary failure [Unknown]
  - Multiple organ dysfunction syndrome [Fatal]

NARRATIVE: CASE EVENT DATE: 20170129
